FAERS Safety Report 16536042 (Version 1)
Quarter: 2019Q3

REPORT INFORMATION
  Report Type: Spontaneous
  Country: US (occurrence: US)
  Receive Date: 20190705
  Receipt Date: 20190705
  Transmission Date: 20191004
  Serious: Yes (Other)
  Sender: FDA-Public Use
  Company Number: US-PFIZER INC-2019283792

PATIENT

DRUGS (1)
  1. XELJANZ [Suspect]
     Active Substance: TOFACITINIB CITRATE
     Indication: ARTHRITIS ENTEROPATHIC
     Dosage: 10 MG, 2X/DAY

REACTIONS (3)
  - Off label use [Unknown]
  - Blood triglycerides increased [Unknown]
  - Product use in unapproved indication [Unknown]
